FAERS Safety Report 9848193 (Version 1)
Quarter: 2013Q4

REPORT INFORMATION
  Report Type: Spontaneous
  Country: US (occurrence: None)
  Receive Date: 20131223
  Receipt Date: 20131223
  Transmission Date: 20140711
  Serious: No
  Sender: FDA-Public Use
  Company Number: 1000050922

PATIENT
  Age: 71 Year
  Sex: Male

DRUGS (13)
  1. LINZESS ( LINACLOTIDE) ( 145 MICROGRAM, CAPSULES) [Suspect]
     Indication: IRRITABLE BOWEL SYNDROME
     Dosage: 145 MCG (145 MCG, 1 IN 1 D), ORAL
     Route: 048
     Dates: start: 20131020
  2. PROMETHAZINE (PROMETHAZINE) (PROMETHAZINE)? [Concomitant]
  3. BENICAR (OLMESARTAN MEDOXOMIL) (OLMESARTAN MEDOXOMIL)? [Concomitant]
  4. NORVASC (AMLODIPINE BESILATE) (AMLODIPINE BESILATE)? [Concomitant]
  5. PRILOSEC (OMEPRAZOLE) (OMEPRAZOLE) [Concomitant]
  6. LIPITOR (ATORVASTATIN CALCIUM) (ATORVASTATIN CALCIUM)? [Concomitant]
  7. BABY ASPIRIN (ACETYLSALICYLIC ACID) (ACETYLSALICYLIC ACID) [Concomitant]
  8. VITAMIN B12 (VITAMIN B12) (VITAMIN B12) [Concomitant]
  9. VITAMIN D3 (COLECALCIFEROL) (COLECALCIFEROL) [Concomitant]
  10. VICODIN (HYDROCODONE BITARTRATE, ACETOMINOPHEN) (HYDROCODONE BITARTRATE, ACETOMINOPHEN)? [Concomitant]
  11. MOTRIN (IBUPROFEN) (IBUPROFEN) [Concomitant]
  12. XANAX (ALPRAZOLAM) (ALPRAZOLAM) [Concomitant]
  13. ZOFRAN (ONDANSETRON HYDROCHLORIDE) (ONDANSETRON HYDROCHLORIDE) [Concomitant]

REACTIONS (2)
  - Constipation [None]
  - Drug ineffective [None]
